FAERS Safety Report 6736212-1 (Version None)
Quarter: 2010Q2

REPORT INFORMATION
  Report Type: 
  Country: None (occurrence: None)
  Receive Date: 20100521
  Receipt Date: 20100513
  Transmission Date: 20101027
  Serious: Yes (Death, Hospitalization, Other)
  Sender: FDA-Public Use
  Company Number: JP-ABBOTT-09P-087-0610726-00

PATIENT
  Sex: Female
  Weight: 53 kg

DRUGS (7)
  1. HUMIRA [Suspect]
     Indication: RHEUMATOID ARTHRITIS
     Route: 058
     Dates: start: 20090610, end: 20091112
  2. METHOTREXATE [Concomitant]
     Indication: RHEUMATOID ARTHRITIS
     Dosage: 4MG/WEEK
     Route: 048
     Dates: end: 20091125
  3. PREDNISOLONE [Concomitant]
     Indication: RHEUMATOID ARTHRITIS
     Dosage: 5MG DAILY
     Route: 048
     Dates: end: 20091125
  4. CELECOXIB [Concomitant]
     Indication: PROPHYLAXIS
     Dosage: 200MG DAILY
     Route: 048
     Dates: end: 20091125
  5. CELECOXIB [Concomitant]
     Indication: ADVERSE EVENT
  6. TEPRENONE [Concomitant]
     Indication: PROPHYLAXIS
     Dosage: 100MG DAILY
     Route: 048
     Dates: end: 20091125
  7. TEPRENONE [Concomitant]
     Indication: ADVERSE EVENT

REACTIONS (4)
  - FAECAL VOLUME DECREASED [None]
  - HEPATIC NEOPLASM [None]
  - METASTASES TO LYMPH NODES [None]
  - RECTAL CANCER [None]
